FAERS Safety Report 25722194 (Version 1)
Quarter: 2025Q3

REPORT INFORMATION
  Report Type: Spontaneous
  Country: US (occurrence: US)
  Receive Date: 20250825
  Receipt Date: 20250825
  Transmission Date: 20251021
  Serious: Yes (Other)
  Sender: DR REDDYS
  Company Number: US-DRL-USA-USA/2025/08/012729

PATIENT
  Sex: Female

DRUGS (8)
  1. LEVETIRACETAM [Suspect]
     Active Substance: LEVETIRACETAM
     Indication: Idiopathic generalised epilepsy
  2. LAMOTRIGINE [Suspect]
     Active Substance: LAMOTRIGINE
     Indication: Idiopathic generalised epilepsy
  3. LACOSAMIDE [Suspect]
     Active Substance: LACOSAMIDE
     Indication: Idiopathic generalised epilepsy
  4. VALPROATE [Suspect]
     Active Substance: VALPROIC ACID
     Indication: Idiopathic generalised epilepsy
  5. ETHOSUXIMIDE [Concomitant]
     Active Substance: ETHOSUXIMIDE
     Indication: Idiopathic generalised epilepsy
  6. ZONISAMIDE [Concomitant]
     Active Substance: ZONISAMIDE
     Indication: Idiopathic generalised epilepsy
  7. BRIVARACETAM [Concomitant]
     Active Substance: BRIVARACETAM
     Indication: Idiopathic generalised epilepsy
  8. PERAMPANEL [Concomitant]
     Active Substance: PERAMPANEL
     Indication: Idiopathic generalised epilepsy

REACTIONS (2)
  - Drug ineffective [Unknown]
  - Adverse event [Unknown]
